FAERS Safety Report 8805406 (Version 1)
Quarter: 2012Q4

REPORT INFORMATION
  Report Type: 
  Country: PE (occurrence: PE)
  Receive Date: 20120924
  Receipt Date: 20120924
  Transmission Date: 20130627
  Serious: Yes (Death, Other)
  Sender: FDA-Public Use
  Company Number: PHHO2005PE20266

PATIENT
  Age: 25 Year
  Sex: Female

DRUGS (3)
  1. GLIVEC [Suspect]
     Indication: CHRONIC MYELOID LEUKAEMIA
     Dosage: 600 mg, QD
     Route: 048
     Dates: start: 20050817, end: 20050916
  2. GLIVEC [Suspect]
     Dosage: 600 mg, QD
     Route: 048
     Dates: start: 20051026, end: 20051106
  3. MERCAPTOPURINE [Concomitant]
     Dates: end: 20050916

REACTIONS (7)
  - Multi-organ failure [Fatal]
  - Neoplasm progression [Fatal]
  - Malignant neoplasm progression [Fatal]
  - Blast crisis in myelogenous leukaemia [Unknown]
  - Thrombocytopenia [Unknown]
  - Anaemia [Unknown]
  - Splenomegaly [Unknown]
